FAERS Safety Report 11884309 (Version 1)
Quarter: 2015Q4

REPORT INFORMATION
  Report Type: Spontaneous
  Country: US (occurrence: None)
  Receive Date: 20151231
  Receipt Date: 20151231
  Transmission Date: 20160305
  Serious: Yes (Other)
  Sender: FDA-Public Use
  Company Number: None

PATIENT
  Age: 21 Year
  Sex: Female
  Weight: 80.74 kg

DRUGS (1)
  1. IMPLANON [Suspect]
     Active Substance: ETONOGESTREL
     Indication: CONTRACEPTION

REACTIONS (4)
  - Injection site mass [None]
  - Injection site swelling [None]
  - Injection site pruritus [None]
  - Injection site erythema [None]

NARRATIVE: CASE EVENT DATE: 20151228
